FAERS Safety Report 12986457 (Version 2)
Quarter: 2016Q4

REPORT INFORMATION
  Report Type: Spontaneous
  Country: JP (occurrence: JP)
  Receive Date: 20161130
  Receipt Date: 20161208
  Transmission Date: 20170207
  Serious: Yes (Hospitalization)
  Sender: FDA-Public Use
  Company Number: JP-SA-2016SA218143

PATIENT
  Age: 73 Year
  Sex: Male

DRUGS (2)
  1. IMMUNOBLADDER [Suspect]
     Active Substance: BACILLUS CALMETTE-GUERIN ANTIGEN, UNSPECIFIED SUBSTRAIN
     Indication: BLADDER CANCER
     Route: 043
  2. BCG FOR IMMUNOTHERAPY [Suspect]
     Active Substance: BACILLUS CALMETTE-GUERIN ANTIGEN, UNSPECIFIED SUBSTRAIN
     Indication: BLADDER CANCER
     Route: 043

REACTIONS (7)
  - Hepatic function abnormal [Unknown]
  - Pyrexia [Unknown]
  - Chills [Unknown]
  - Pyuria [Recovered/Resolved]
  - Haematuria [Unknown]
  - Inflammation [Unknown]
  - Disseminated Bacillus Calmette-Guerin infection [Unknown]
